FAERS Safety Report 4434248-7 (Version None)
Quarter: 2004Q3

REPORT INFORMATION
  Report Type: 
  Country: None (occurrence: None)
  Receive Date: 20040825
  Receipt Date: 20040820
  Transmission Date: 20050211
  Serious: Yes (Hospitalization)
  Sender: FDA-Public Use
  Company Number: 200412501GDS

PATIENT
  Age: 87 Year
  Sex: Male

DRUGS (6)
  1. CIPROFLOXACIN [Suspect]
     Indication: URINARY TRACT INFECTION
     Dosage: 500 MG, TOTAL DAILY, ORAL
     Route: 048
     Dates: start: 20040723, end: 20040730
  2. ESOMEPRAZOLE [Concomitant]
  3. FERROUS SULFATE TAB [Concomitant]
  4. PHENYTOIN [Concomitant]
  5. OXCARAZEPINE [Concomitant]
  6. GALENC /CYANOCOBALAMIN/PYRIDOXINE/THIAMINE [Concomitant]

REACTIONS (1)
  - STATUS EPILEPTICUS [None]
